FAERS Safety Report 5647466-7 (Version None)
Quarter: 2008Q1

REPORT INFORMATION
  Report Type: 
  Country: None (occurrence: None)
  Receive Date: 20080303
  Receipt Date: 20080219
  Transmission Date: 20080703
  Serious: Yes (Other)
  Sender: FDA-Public Use
  Company Number: DE-GENENTECH-256001

PATIENT
  Age: 45 Year
  Sex: Male

DRUGS (2)
  1. AVASTIN [Suspect]
     Indication: MACULAR OEDEMA
     Dosage: 1.25 MG, 1/MONTH
     Route: 031
     Dates: start: 20060215, end: 20060315
  2. AVASTIN [Suspect]
     Indication: UVEITIS

REACTIONS (1)
  - CATARACT [None]
